FAERS Safety Report 8462051-X (Version None)
Quarter: 2012Q2

REPORT INFORMATION
  Report Type: 
  Country: None (occurrence: None)
  Receive Date: 20120625
  Receipt Date: 20120618
  Transmission Date: 20120825
  Serious: Yes (Hospitalization)
  Sender: FDA-Public Use
  Company Number: US-BAYER-2012-060808

PATIENT
  Age: 44 Year
  Sex: Female
  Weight: 98.866 kg

DRUGS (9)
  1. DROSPIRENONE AND ETHINYL ESTRADIOL [Suspect]
  2. NEXIUM [Concomitant]
     Indication: BARRETT'S OESOPHAGUS
     Dosage: 40 MG, UNK
     Route: 048
  3. SUDAFED 12 HOUR [Concomitant]
     Dosage: UNK UNK, PRN
     Route: 048
  4. PHENTERMINE [Concomitant]
     Dosage: 37.5 MG, UNK
     Route: 048
     Dates: start: 20111013
  5. NAPROXEN [Concomitant]
     Dosage: 550 MG, UNK
     Route: 048
     Dates: start: 20111013
  6. CIPROFLOXACIN [Concomitant]
     Dosage: 500 MG, UNK
     Route: 048
     Dates: start: 20111013
  7. MAXALT [Concomitant]
     Dosage: UNK UNK, PRN
     Route: 048
  8. LORTAB [Concomitant]
  9. GUAIFENESIN [Concomitant]
     Dosage: UNK UNK, PRN
     Route: 048

REACTIONS (1)
  - DEEP VEIN THROMBOSIS [None]
